FAERS Safety Report 4949505-5 (Version None)
Quarter: 2006Q1

REPORT INFORMATION
  Report Type: 
  Country: None (occurrence: None)
  Receive Date: 20060315
  Receipt Date: 20060224
  Transmission Date: 20060701
  Serious: Yes (Hospitalization, Other)
  Sender: FDA-Public Use
  Company Number: US200601003017

PATIENT
  Age: 69 Year
  Sex: Female
  Weight: 71.7 kg

DRUGS (15)
  1. EVISTA [Suspect]
     Indication: OSTEOPOROSIS
     Dosage: 60 MG, ORAL
     Route: 048
     Dates: start: 20050101, end: 20051001
  2. SYNTHROID [Concomitant]
  3. PROTONIX [Concomitant]
  4. HUMULIN N [Concomitant]
  5. HUMALOG /GFR/ (INSULIN LISPRO) [Concomitant]
  6. CELLCEPT /USA/ (MYCOPHENOLATE MOFETIL) [Concomitant]
  7. CYCLOSPORINE [Concomitant]
  8. PROGRAF /USA/ (TACROLIMUS) [Concomitant]
  9. AMIODARONE (AMIODRARONE) [Concomitant]
  10. PREDNISONE TAB [Concomitant]
  11. ASPIRIN [Concomitant]
  12. ALLOPURINOL [Concomitant]
  13. ATENOLOL [Concomitant]
  14. TRAVATAN [Concomitant]
  15. EZETIMIBE (EZETIMIBE) [Concomitant]

REACTIONS (3)
  - BRADYCARDIA [None]
  - FALL [None]
  - HIP FRACTURE [None]
